FAERS Safety Report 14499402 (Version 1)
Quarter: 2018Q1

REPORT INFORMATION
  Report Type: Spontaneous
  Country: US (occurrence: US)
  Receive Date: 20180206
  Receipt Date: 20180206
  Transmission Date: 20180509
  Serious: Yes (Hospitalization)
  Sender: FDA-Public Use
  Company Number: None

PATIENT
  Age: 49 Year
  Sex: Female
  Weight: 64.8 kg

DRUGS (4)
  1. DIVALPROEX [Concomitant]
     Active Substance: DIVALPROEX SODIUM
  2. CLOZAPINE. [Suspect]
     Active Substance: CLOZAPINE
     Route: 048
     Dates: start: 20150825, end: 20180206
  3. DIVALPROEX [Suspect]
     Active Substance: DIVALPROEX SODIUM
     Route: 048
     Dates: start: 20150323, end: 20180206
  4. CLOZAPINE. [Concomitant]
     Active Substance: CLOZAPINE

REACTIONS (3)
  - Confusional state [None]
  - Disorientation [None]
  - Mental impairment [None]

NARRATIVE: CASE EVENT DATE: 20180115
